FAERS Safety Report 5975099-1 (Version None)
Quarter: 2008Q4

REPORT INFORMATION
  Report Type: 
  Country: None (occurrence: None)
  Receive Date: 20081128
  Receipt Date: 20081118
  Transmission Date: 20090506
  Serious: Yes (Death, Life-Threatening, Hospitalization, Disabling, Other)
  Sender: FDA-Public Use
  Company Number: 100#03#2008-05823

PATIENT
  Sex: Male

DRUGS (6)
  1. TORSEMIDE [Suspect]
     Indication: OEDEMA
     Dosage: 10 MG TWICE DAILY
     Route: 048
     Dates: start: 20080601, end: 20080831
  2. SPIRONOLACTONE [Suspect]
     Indication: OEDEMA
     Dosage: 50 MG ONCE DAILY
     Route: 048
     Dates: start: 20080601, end: 20080831
  3. L-POLAMIDON (METHADONE) [Suspect]
     Indication: POLYSUBSTANCE DEPENDENCE
     Dosage: 40 MG TWICE DAILY
     Route: 048
     Dates: start: 19980101, end: 20080824
  4. MAGNESIUM (MAGNESIUM) [Concomitant]
  5. METOCLOPRAMIDE [Concomitant]
  6. ACETAMINOPHEN [Concomitant]

REACTIONS (2)
  - LONG QT SYNDROME [None]
  - TORSADE DE POINTES [None]
